FAERS Safety Report 20751908 (Version 1)
Quarter: 2022Q2

REPORT INFORMATION
  Report Type: Spontaneous
  Country: CA (occurrence: CA)
  Receive Date: 20220426
  Receipt Date: 20220426
  Transmission Date: 20220721
  Serious: Yes (Life-Threatening, Hospitalization)
  Sender: FDA-Public Use
  Company Number: CA-TEVA-2022-CA-2029432

PATIENT
  Age: 67 Year
  Sex: Female
  Weight: 76 kg

DRUGS (16)
  1. DOXORUBICIN HYDROCHLORIDE [Suspect]
     Active Substance: DOXORUBICIN HYDROCHLORIDE
     Indication: Invasive ductal breast carcinoma
     Route: 065
  2. CYCLOPHOSPHAMIDE [Suspect]
     Active Substance: CYCLOPHOSPHAMIDE
     Indication: Invasive ductal breast carcinoma
     Route: 065
  3. ALUMINUM HYDROXIDE\MAGNESIUM HYDROXIDE [Concomitant]
     Active Substance: ALUMINUM HYDROXIDE\MAGNESIUM HYDROXIDE
  4. ATORVASTATIN [Concomitant]
     Active Substance: ATORVASTATIN
     Route: 065
  5. BREO ELLIPTA [Concomitant]
     Active Substance: FLUTICASONE FUROATE\VILANTEROL TRIFENATATE
     Route: 065
  6. BUPROPION [Concomitant]
     Active Substance: BUPROPION
     Route: 065
  7. CALCIUM [Concomitant]
     Active Substance: CALCIUM
  8. DEXAMETHASONE [Concomitant]
     Active Substance: DEXAMETHASONE
  9. EMEND [Concomitant]
     Active Substance: APREPITANT
  10. OLANZAPINE [Concomitant]
     Active Substance: OLANZAPINE
  11. PANTOPRAZOLE [Concomitant]
     Active Substance: PANTOPRAZOLE
  12. PEGFILGRASTIM [Concomitant]
     Active Substance: PEGFILGRASTIM
  13. PROCHLORPERAZINE [Concomitant]
     Active Substance: PROCHLORPERAZINE
  14. TERBUTALINE [Concomitant]
     Active Substance: TERBUTALINE
  15. VITAMIN D [Concomitant]
     Active Substance: VITAMIN D NOS
  16. gargarisme ono [Concomitant]

REACTIONS (7)
  - Empyema [Recovered/Resolved]
  - Endotracheal intubation [Recovered/Resolved]
  - Escherichia infection [Recovered/Resolved]
  - Intensive care [Recovered/Resolved]
  - Neutropenia [Recovered/Resolved]
  - Septic shock [Recovered/Resolved]
  - Tracheostomy [Recovered/Resolved]
